FAERS Safety Report 17462968 (Version 1)
Quarter: 2020Q1

REPORT INFORMATION
  Report Type: Report from Study
  Country: CA (occurrence: CA)
  Receive Date: 20200226
  Receipt Date: 20200226
  Transmission Date: 20200409
  Serious: Yes (Other)
  Sender: FDA-Public Use
  Company Number: CA-GLAXOSMITHKLINE-CA2020AMR032176

PATIENT
  Sex: Female

DRUGS (6)
  1. FLUTICASONE PROPIONATE+SALMETEROL XINAFOATE [Suspect]
     Active Substance: FLUTICASONE PROPIONATE\SALMETEROL XINAFOATE
     Indication: PRODUCT USED FOR UNKNOWN INDICATION
     Dosage: 1 PUFF(S), BID
  2. SYNTHROID [Suspect]
     Active Substance: LEVOTHYROXINE SODIUM
     Indication: PRODUCT USED FOR UNKNOWN INDICATION
     Dosage: 0.5 MG, QD
  3. SIMVASTATIN. [Suspect]
     Active Substance: SIMVASTATIN
     Indication: PRODUCT USED FOR UNKNOWN INDICATION
     Dosage: 20 MG, QD
  4. SINGULAIR [Suspect]
     Active Substance: MONTELUKAST SODIUM
     Indication: PRODUCT USED FOR UNKNOWN INDICATION
     Dosage: 10 MG, QD
  5. ZENHALE [Suspect]
     Active Substance: FORMOTEROL FUMARATE\MOMETASONE FUROATE
     Indication: PRODUCT USED FOR UNKNOWN INDICATION
     Dosage: 2 PUFF(S), BID
  6. PREDNISONE. [Suspect]
     Active Substance: PREDNISONE
     Indication: PRODUCT USED FOR UNKNOWN INDICATION
     Dosage: 5 MG, PRN

REACTIONS (17)
  - Upper-airway cough syndrome [Not Recovered/Not Resolved]
  - Injection site reaction [Unknown]
  - Chest discomfort [Unknown]
  - Rhinitis allergic [Unknown]
  - Cough [Unknown]
  - Nasal congestion [Unknown]
  - Dyspnoea exertional [Unknown]
  - Wheezing [Recovered/Resolved]
  - Asthma [Unknown]
  - Hypersensitivity [Unknown]
  - Treatment noncompliance [Unknown]
  - Sinus disorder [Unknown]
  - Blood count abnormal [Unknown]
  - Respiratory disorder [Unknown]
  - Dyspnoea [Unknown]
  - Lower respiratory tract congestion [Recovered/Resolved]
  - Therapeutic product effect incomplete [Unknown]
